FAERS Safety Report 10191955 (Version 1)
Quarter: 2014Q2

REPORT INFORMATION
  Report Type: Spontaneous
  Country: IN (occurrence: IN)
  Receive Date: 20140523
  Receipt Date: 20140523
  Transmission Date: 20141212
  Serious: Yes (Other)
  Sender: FDA-Public Use
  Company Number: IN-WATSON-2014-10203

PATIENT
  Age: 55 Year
  Sex: Female

DRUGS (1)
  1. SULFASALAZINE (WATSON LABORATORIES) [Suspect]
     Indication: RHEUMATOID ARTHRITIS
     Dosage: 500 MG, BID
     Route: 065

REACTIONS (1)
  - Lichenoid keratosis [Recovering/Resolving]
